FAERS Safety Report 8394988-4 (Version None)
Quarter: 2012Q2

REPORT INFORMATION
  Report Type: 
  Country: None (occurrence: None)
  Receive Date: 20120530
  Receipt Date: 20120517
  Transmission Date: 20120825
  Serious: Yes (Hospitalization)
  Sender: FDA-Public Use
  Company Number: US-ELI_LILLY_AND_COMPANY-US201205007135

PATIENT
  Age: 71 Year
  Sex: Female

DRUGS (1)
  1. CYMBALTA [Suspect]
     Indication: BACK PAIN
     Dosage: UNK, SINGLE
     Dates: start: 20120515, end: 20120515

REACTIONS (14)
  - NAUSEA [None]
  - HOT FLUSH [None]
  - TREMOR [None]
  - DIARRHOEA [None]
  - DEHYDRATION [None]
  - APHAGIA [None]
  - BLOOD SODIUM DECREASED [None]
  - FEELING OF BODY TEMPERATURE CHANGE [None]
  - VOMITING [None]
  - DIZZINESS [None]
  - ASTHENIA [None]
  - HEADACHE [None]
  - ABDOMINAL PAIN UPPER [None]
  - BLOOD ELECTROLYTES DECREASED [None]
